FAERS Safety Report 9335388 (Version 1)
Quarter: 2013Q2

REPORT INFORMATION
  Report Type: Spontaneous
  Country: ZA (occurrence: ZA)
  Receive Date: 20130605
  Receipt Date: 20130605
  Transmission Date: 20140414
  Serious: Yes (Death)
  Sender: FDA-Public Use
  Company Number: ZA-ABBOTT-13X-143-1099174-00

PATIENT
  Age: 28 Year
  Sex: Male

DRUGS (7)
  1. EPILIM [Suspect]
     Indication: MANIA
     Dosage: UNKOWN:UNKNOWN
  2. NEVIRAPINE [Suspect]
     Indication: MANIA
     Dosage: 200 MILLIGRAM(S); DAILY
     Route: 048
     Dates: start: 20130419
  3. NEVIRAPINE [Suspect]
     Route: 048
     Dates: start: 20130503
  4. RISPERIDONE [Concomitant]
     Indication: PRODUCT USED FOR UNKNOWN INDICATION
  5. ZIDOVUDINE [Concomitant]
     Indication: PRODUCT USED FOR UNKNOWN INDICATION
  6. LAMIVUDINE [Concomitant]
     Indication: PRODUCT USED FOR UNKNOWN INDICATION
  7. SODIUM VALPROATE [Concomitant]
     Indication: PRODUCT USED FOR UNKNOWN INDICATION

REACTIONS (2)
  - Stevens-Johnson syndrome [Fatal]
  - Rash [Unknown]
